FAERS Safety Report 8575750-6 (Version None)
Quarter: 2012Q3

REPORT INFORMATION
  Report Type: 
  Country: None (occurrence: None)
  Receive Date: 20120807
  Receipt Date: 20120806
  Transmission Date: 20120928
  Serious: Yes (Hospitalization, Other)
  Sender: FDA-Public Use
  Company Number: PHEH2009US00488

PATIENT
  Sex: Male

DRUGS (35)
  1. AREDIA [Suspect]
     Indication: OSTEOPOROSIS
  2. VELOCEF [Concomitant]
     Dosage: 250 MG, UNK
  3. THALOMID [Concomitant]
     Dosage: 50 MG, QHS
  4. ASPIRIN [Concomitant]
  5. PSYLLIUM HUSK [Concomitant]
     Dosage: 1 DF, QD
     Route: 048
  6. AMBIEN [Concomitant]
     Dosage: 10 MG, QHS
     Route: 048
  7. SEROQUEL [Concomitant]
  8. FUROSEMIDE [Concomitant]
  9. ELAVIL [Concomitant]
  10. LOTENSIN [Concomitant]
     Dosage: 20 MG, UNK
  11. FLOMAX [Concomitant]
     Dosage: 0.4 MG, QHS
     Route: 048
  12. AREDIA [Suspect]
     Indication: BONE LOSS
     Dosage: 90 MG, QMO
     Dates: start: 20020101
  13. EFFEXOR [Concomitant]
  14. NAPROXEN (ALEVE) [Concomitant]
     Dosage: 220 MG, QD
     Route: 048
  15. LYRICA [Concomitant]
     Dosage: 20 MG, QD
     Route: 048
  16. ZOMETA [Suspect]
     Indication: OSTEOPOROSIS
  17. ATIVAN [Concomitant]
  18. COUMADIN [Concomitant]
  19. IPRATROPIUM BROMIDE [Concomitant]
  20. AVANDIA [Concomitant]
  21. PROCRIT [Concomitant]
  22. CORDARONE [Concomitant]
  23. COUMADIN [Concomitant]
  24. PREDNISONE [Concomitant]
     Dosage: 20 MG, UNK
  25. REMERON [Concomitant]
  26. CARTIA XT [Concomitant]
  27. PERIDEX [Concomitant]
  28. HYTRIN [Concomitant]
  29. REVLIMID [Concomitant]
     Dosage: 5 MG, QD
     Route: 048
  30. PREVACID [Concomitant]
     Dosage: 30 MG, BID
     Route: 048
  31. ZOMETA [Suspect]
     Indication: BONE LOSS
     Dosage: 4 MG, QMO
     Dates: end: 20060401
  32. PRINIVIL [Concomitant]
  33. ANUSOL-HC                               /USA/ [Concomitant]
  34. LANTUS [Concomitant]
  35. ZOLOFT [Concomitant]
     Dosage: 50 MG, UNK

REACTIONS (108)
  - PAIN [None]
  - RESPIRATORY FAILURE [None]
  - NASAL CONGESTION [None]
  - NAUSEA [None]
  - VOMITING [None]
  - PYREXIA [None]
  - PERIPHERAL SENSORY NEUROPATHY [None]
  - DECREASED APPETITE [None]
  - RESTRICTIVE PULMONARY DISEASE [None]
  - OPEN ANGLE GLAUCOMA [None]
  - CARDIAC FAILURE CONGESTIVE [None]
  - ATRIAL FIBRILLATION [None]
  - MULTIPLE INJURIES [None]
  - BASAL CELL CARCINOMA [None]
  - PNEUMONIA [None]
  - OSTEOLYSIS [None]
  - GASTROENTERITIS [None]
  - MUSCULOSKELETAL PAIN [None]
  - CATARACT [None]
  - POST HERPETIC NEURALGIA [None]
  - HYPOTHYROIDISM [None]
  - ADRENAL INSUFFICIENCY [None]
  - VENTRICULAR TACHYCARDIA [None]
  - UNEVALUABLE EVENT [None]
  - EXPOSED BONE IN JAW [None]
  - ANAEMIA OF MALIGNANT DISEASE [None]
  - AORTIC ARTERIOSCLEROSIS [None]
  - LEFT ATRIAL DILATATION [None]
  - SINUS ARRHYTHMIA [None]
  - ANXIETY [None]
  - BONE MARROW TRANSPLANT [None]
  - SPINAL OSTEOARTHRITIS [None]
  - FALL [None]
  - TENDERNESS [None]
  - LUNG INFILTRATION [None]
  - FOOD ALLERGY [None]
  - CONSTIPATION [None]
  - OCCULT BLOOD POSITIVE [None]
  - HYPOVOLAEMIA [None]
  - MULTI-ORGAN FAILURE [None]
  - TRICUSPID VALVE INCOMPETENCE [None]
  - IRON DEFICIENCY ANAEMIA [None]
  - RENAL FAILURE [None]
  - RENAL CYST [None]
  - UPPER RESPIRATORY TRACT INFECTION [None]
  - ACTINOMYCOSIS [None]
  - CARDIOMEGALY [None]
  - METABOLIC ACIDOSIS [None]
  - MENIERE'S DISEASE [None]
  - DEHYDRATION [None]
  - TYPE 1 DIABETES MELLITUS [None]
  - CUTIS LAXA [None]
  - INSOMNIA [None]
  - ROTATOR CUFF SYNDROME [None]
  - SQUAMOUS CELL CARCINOMA [None]
  - PAPULE [None]
  - RECTAL HAEMORRHAGE [None]
  - DEPRESSION [None]
  - COMPRESSION FRACTURE [None]
  - PLEURAL EFFUSION [None]
  - DYSPHAGIA [None]
  - OEDEMA PERIPHERAL [None]
  - SKIN INJURY [None]
  - HYPOACUSIS [None]
  - OSTEOMYELITIS BACTERIAL [None]
  - SEPTIC SHOCK [None]
  - DRUG HYPERSENSITIVITY [None]
  - DIARRHOEA [None]
  - POSTERIOR CAPSULE OPACIFICATION [None]
  - BLEPHARITIS [None]
  - DENTAL FISTULA [None]
  - SOFT TISSUE HAEMORRHAGE [None]
  - LEFT VENTRICULAR DYSFUNCTION [None]
  - OSTEONECROSIS OF JAW [None]
  - HAEMATOMA [None]
  - ECCHYMOSIS [None]
  - BENIGN PROSTATIC HYPERPLASIA [None]
  - ASTHENIA [None]
  - PULMONARY FIBROSIS [None]
  - ATRIOVENTRICULAR BLOCK FIRST DEGREE [None]
  - DECUBITUS ULCER [None]
  - HYPERTENSION [None]
  - GASTRITIS [None]
  - ACTINIC KERATOSIS [None]
  - INTERVERTEBRAL DISC PROTRUSION [None]
  - FATIGUE [None]
  - ATRIAL FLUTTER [None]
  - UNRESPONSIVE TO STIMULI [None]
  - BACTERAEMIA [None]
  - HYPOCALCAEMIA [None]
  - HERPES ZOSTER [None]
  - STEM CELL TRANSPLANT [None]
  - MITRAL VALVE INCOMPETENCE [None]
  - NEPHROLITHIASIS [None]
  - OPEN WOUND [None]
  - COLONIC POLYP [None]
  - DIVERTICULUM [None]
  - ATELECTASIS [None]
  - NECK PAIN [None]
  - PRODUCTIVE COUGH [None]
  - SYNCOPE [None]
  - HYPOXIA [None]
  - PANCYTOPENIA [None]
  - BENIGN COLONIC NEOPLASM [None]
  - ANKLE FRACTURE [None]
  - CELLULITIS [None]
  - HEMIPLEGIA [None]
  - ORAL HERPES [None]
